FAERS Safety Report 18235603 (Version 1)
Quarter: 2020Q3

REPORT INFORMATION
  Report Type: Spontaneous
  Country: JP (occurrence: JP)
  Receive Date: 20200905
  Receipt Date: 20200905
  Transmission Date: 20201103
  Serious: Yes (Other)
  Sender: FDA-Public Use
  Company Number: JP-SUN PHARMACEUTICAL INDUSTRIES LTD-2020RR-246504

PATIENT
  Age: 55 Year
  Sex: Male

DRUGS (6)
  1. OXALIPLATIN. [Suspect]
     Active Substance: OXALIPLATIN
     Indication: PANCREATIC CARCINOMA METASTATIC
     Dosage: 85 MILLIGRAM/SQ. METER, UNK, DIV, FIVE COURSES OF MFOLFIRINOX
     Route: 065
  2. CALCIUM FOLINAT [Suspect]
     Active Substance: LEUCOVORIN CALCIUM
     Indication: PANCREATIC CARCINOMA METASTATIC
     Dosage: 400 MILLIGRAM/SQ. METER, UNK, DIV, FIVE COURSES OF MFOLFIRINOX
     Route: 065
  3. IRINOTECAN [Suspect]
     Active Substance: IRINOTECAN
     Indication: PANCREATIC CARCINOMA METASTATIC
     Dosage: 150 MILLIGRAM/SQ. METER, UNK. DIV, FIVE COURSES OF MFOLFIRINOX
     Route: 065
  4. ZOLEDRONIC ACID [Suspect]
     Active Substance: ZOLEDRONIC ACID
     Indication: PANCREATIC CARCINOMA METASTATIC
     Dosage: 4 MILLIGRAM, DAILY, EVERY 4 WEEKS
     Route: 065
  5. 5?FLUOROURACIL [Suspect]
     Active Substance: FLUOROURACIL
     Indication: PANCREATIC CARCINOMA METASTATIC
     Dosage: 2400 MILLIGRAM/SQ. METER, ON 46?H INFUSION, FIVE COURSES
     Route: 042
  6. ZOLEDRONIC ACID [Suspect]
     Active Substance: ZOLEDRONIC ACID
     Indication: METASTASES TO BONE

REACTIONS (6)
  - Anaemia [Unknown]
  - Malaise [Unknown]
  - Neutropenia [Unknown]
  - Therapy partial responder [Unknown]
  - Decreased appetite [Unknown]
  - Thrombocytopenia [Unknown]
